FAERS Safety Report 9003466 (Version 1)
Quarter: 2013Q1

REPORT INFORMATION
  Report Type: Spontaneous
  Country: NL (occurrence: NL)
  Receive Date: 20130108
  Receipt Date: 20130108
  Transmission Date: 20140127
  Serious: Yes (Hospitalization, Other)
  Sender: FDA-Public Use
  Company Number: PHHY2013NL001356

PATIENT
  Age: 32 Year
  Sex: Female
  Weight: 56 kg

DRUGS (5)
  1. SERTRALINE SANDOZ [Suspect]
     Indication: DEPRESSION
     Dosage: 50 MG, QD
     Route: 048
     Dates: start: 20120803
  2. SERTRALINE SANDOZ [Suspect]
     Dosage: 0.5 DF, UNK
     Route: 048
     Dates: start: 20121106, end: 20121120
  3. AMOXICILLIN [Suspect]
     Indication: UTERINE INFECTION
     Dosage: 3 DF, UNK
  4. QVAR [Suspect]
     Dosage: 1 DF (2 INHALATIONS)
     Dates: start: 200910
  5. AUGMENTIN                          /00852501/ [Suspect]
     Indication: UTERINE INFECTION
     Dosage: UNK UKN, UNK

REACTIONS (4)
  - Uterine infection [Unknown]
  - Uterine inflammation [Unknown]
  - Abortion spontaneous [Unknown]
  - Maternal exposure during pregnancy [Unknown]
